FAERS Safety Report 19975860 (Version 3)
Quarter: 2021Q4

REPORT INFORMATION
  Report Type: Spontaneous
  Country: US (occurrence: US)
  Receive Date: 20211020
  Receipt Date: 20211020
  Transmission Date: 20220303
  Serious: No
  Sender: FDA-Public Use
  Company Number: US-ALLERGAN-2106432US

PATIENT

DRUGS (3)
  1. LINZESS [Suspect]
     Active Substance: LINACLOTIDE
     Indication: Constipation
     Dosage: 72 ?G
     Route: 048
     Dates: start: 2018
  2. LINZESS [Suspect]
     Active Substance: LINACLOTIDE
     Indication: Constipation
     Dosage: 145 ?G
     Route: 048
  3. LINZESS [Suspect]
     Active Substance: LINACLOTIDE
     Indication: Constipation
     Dosage: 290 ?G
     Route: 048

REACTIONS (5)
  - Eye operation [Unknown]
  - Incorrect dose administered [Unknown]
  - Therapy cessation [Unknown]
  - Constipation [Unknown]
  - Drug ineffective [Unknown]
